FAERS Safety Report 7237156-1 (Version None)
Quarter: 2011Q1

REPORT INFORMATION
  Report Type: 
  Country: None (occurrence: None)
  Receive Date: 20110121
  Receipt Date: 20110113
  Transmission Date: 20110831
  Serious: Yes (Other)
  Sender: FDA-Public Use
  Company Number: US-ASTRAZENECA-2008UW22853

PATIENT
  Age: 53 Year
  Sex: Female
  Weight: 120.2 kg

DRUGS (14)
  1. SEROQUEL [Suspect]
     Indication: SLEEP DISORDER
     Route: 048
     Dates: start: 20030201, end: 20070101
  2. SEROQUEL [Suspect]
     Route: 048
     Dates: start: 20030217
  3. ZYPREXA [Concomitant]
     Dates: start: 20030131, end: 20030605
  4. EFFEXOR XR [Concomitant]
     Dosage: 75MG, 150MG
     Dates: start: 20010101
  5. SEROQUEL [Suspect]
     Route: 048
     Dates: start: 20030217
  6. ALPRAZOLAM [Concomitant]
     Dates: start: 20030228
  7. GEODON [Concomitant]
     Dates: start: 20010613, end: 20060215
  8. SEROQUEL [Suspect]
     Indication: MENTAL DISORDER
     Route: 048
     Dates: start: 20030201, end: 20070101
  9. SEROQUEL [Suspect]
     Route: 048
     Dates: start: 20070101
  10. PAXIL CR [Concomitant]
     Dates: end: 20050428
  11. NAPROXEN SODIUM [Concomitant]
     Dates: start: 20030213
  12. HYDROCONE W ACETAMINOPHEN [Concomitant]
     Dates: start: 20030228
  13. WELLBUTRIN XL [Concomitant]
     Dosage: 300
     Dates: start: 20050428
  14. SEROQUEL [Suspect]
     Route: 048
     Dates: start: 20070101

REACTIONS (9)
  - SYNOVITIS [None]
  - TYPE 2 DIABETES MELLITUS [None]
  - TENDONITIS [None]
  - GLUCOSE TOLERANCE IMPAIRED [None]
  - ARTERIAL DISORDER [None]
  - ARTHROPATHY [None]
  - CARPAL TUNNEL SYNDROME [None]
  - ARTHRALGIA [None]
  - SUICIDE ATTEMPT [None]
